FAERS Safety Report 7611132 (Version 5)
Quarter: 2020Q1

REPORT INFORMATION
  Report Type: Report from Study
  Country: JP (occurrence: JP)
  Receive Date: 20100929
  Receipt Date: 20200109
  Transmission Date: 20200409
  Serious: Yes (Death, Disabling, Other)
  Sender: FDA-Public Use
  Company Number: JP-CELGENEUS-087-21880-10091398

PATIENT
  Age: 70 Year
  Sex: Female

DRUGS (36)
  1. PREDONINE [Concomitant]
     Active Substance: PREDNISOLONE
     Dosage: 15 MILLIGRAM
     Route: 065
     Dates: start: 20100903, end: 20100905
  2. PREDONINE [Concomitant]
     Active Substance: PREDNISOLONE
     Dosage: 30 MILLIGRAM
     Route: 065
     Dates: start: 20100911, end: 20100916
  3. LASIX [Concomitant]
     Active Substance: FUROSEMIDE
     Indication: PRODUCT USED FOR UNKNOWN INDICATION
     Dosage: 22 MILLILITER
     Route: 041
     Dates: start: 20100916, end: 20100916
  4. PREDONINE [Concomitant]
     Active Substance: PREDNISOLONE
     Indication: PLASMA CELL MYELOMA
     Dosage: 20 MILLIGRAM
     Route: 048
     Dates: start: 20100826, end: 20100902
  5. TRANSAMIN [Concomitant]
     Active Substance: TRANEXAMIC ACID
     Indication: PRODUCT USED FOR UNKNOWN INDICATION
     Dosage: 1 GRAM
     Route: 041
     Dates: start: 20100915, end: 20100915
  6. DORMICUM [Concomitant]
     Dosage: 24 MILLILITER
     Route: 041
     Dates: start: 20100917, end: 20100917
  7. LASIX [Concomitant]
     Active Substance: FUROSEMIDE
     Dosage: 16 MILLILITER
     Route: 041
     Dates: start: 20100917, end: 20100917
  8. REVLIMID [Suspect]
     Active Substance: LENALIDOMIDE
     Indication: 5Q MINUS SYNDROME
     Dosage: 10 MILLIGRAM
     Route: 048
     Dates: start: 20100903, end: 20100907
  9. PREDONINE [Concomitant]
     Active Substance: PREDNISOLONE
     Dosage: 10 MILLIGRAM
     Route: 065
     Dates: start: 20100906, end: 20100909
  10. URSO [Concomitant]
     Active Substance: URSODIOL
     Indication: CHRONIC HEPATITIS C
     Dosage: 600 MILLIGRAM
     Route: 065
     Dates: end: 20100915
  11. DOBUTREX [Concomitant]
     Active Substance: DOBUTAMINE HYDROCHLORIDE
     Indication: PRODUCT USED FOR UNKNOWN INDICATION
     Dosage: 5 MILLILITER
     Route: 041
     Dates: start: 20100916, end: 20100916
  12. MIOBLOCK [Concomitant]
     Indication: PRODUCT USED FOR UNKNOWN INDICATION
     Dosage: 2 MILLILITER
     Route: 041
     Dates: start: 20100916, end: 20100916
  13. ELASPOL [Concomitant]
     Active Substance: SIVELESTAT SODIUM
     Indication: PRODUCT USED FOR UNKNOWN INDICATION
     Dosage: 280 MILLIGRAM
     Route: 041
     Dates: start: 20100916, end: 20100916
  14. MEROPEN [Concomitant]
     Active Substance: MEROPENEM
     Indication: PRODUCT USED FOR UNKNOWN INDICATION
     Route: 065
     Dates: start: 20100917, end: 20100917
  15. BONALON [Concomitant]
     Active Substance: ALENDRONATE SODIUM
     Indication: PLASMA CELL MYELOMA
     Dosage: 5 MILLIGRAM
     Route: 065
     Dates: start: 20100826, end: 20100915
  16. ROCEPHIN [Concomitant]
     Active Substance: CEFTRIAXONE SODIUM
     Indication: PRODUCT USED FOR UNKNOWN INDICATION
     Dosage: 2 GRAM
     Route: 041
     Dates: start: 20100915, end: 20100916
  17. GASTER [Concomitant]
     Active Substance: FAMOTIDINE
     Indication: PRODUCT USED FOR UNKNOWN INDICATION
     Dosage: 20 MILLIGRAM
     Route: 041
     Dates: start: 20100916, end: 20100917
  18. PREDONINE [Concomitant]
     Active Substance: PREDNISOLONE
     Dosage: 40 MILLIGRAM
     Route: 065
     Dates: start: 20100910, end: 20100910
  19. PARIET [Concomitant]
     Active Substance: RABEPRAZOLE SODIUM
     Indication: PROPHYLAXIS
     Dosage: 10 MILLIGRAM
     Route: 065
     Dates: end: 20100914
  20. ALBUMIN [Concomitant]
     Active Substance: ALBUMIN HUMAN
     Indication: PRODUCT USED FOR UNKNOWN INDICATION
     Dosage: 12.5G/50ML 2V
     Route: 041
     Dates: start: 20100916, end: 20100916
  21. LASIX [Concomitant]
     Active Substance: FUROSEMIDE
     Dosage: 4 MILLIGRAM
     Route: 041
     Dates: start: 20100916, end: 20100916
  22. ADRENALINE [Concomitant]
     Active Substance: EPINEPHRINE
     Indication: PRODUCT USED FOR UNKNOWN INDICATION
     Dosage: 6 SYRINGES
     Route: 041
     Dates: start: 20100917, end: 20100917
  23. MYSLEE [Concomitant]
     Active Substance: ZOLPIDEM TARTRATE
     Indication: ILL-DEFINED DISORDER
     Dosage: 10 MILLIGRAM
     Route: 065
     Dates: start: 20100817, end: 20100908
  24. MINOFIT [Concomitant]
     Active Substance: CYSTEINE\GLYCINE\GLYCYRRHIZIN
     Indication: CHRONIC HEPATITIS C
     Dosage: 40 MILLILITER
     Route: 041
     Dates: end: 20100913
  25. TRANSAMIN [Concomitant]
     Active Substance: TRANEXAMIC ACID
     Dosage: 5 MILLILITER
     Route: 041
     Dates: start: 20100916, end: 20100916
  26. SOLU-MEDROL [Concomitant]
     Active Substance: METHYLPREDNISOLONE SODIUM SUCCINATE
     Indication: PRODUCT USED FOR UNKNOWN INDICATION
     Dosage: 1000 MILLIGRAM
     Route: 041
     Dates: start: 20100915, end: 20100915
  27. DORMICUM [Concomitant]
     Indication: PRODUCT USED FOR UNKNOWN INDICATION
     Dosage: 70 MILLIGRAM
     Route: 041
     Dates: start: 20100915, end: 20100915
  28. CATABON HI [Concomitant]
     Indication: PRODUCT USED FOR UNKNOWN INDICATION
     Dosage: 200 MILLILITER
     Route: 041
     Dates: start: 20100916, end: 20100917
  29. HUSTAZOL [Concomitant]
     Indication: ILL-DEFINED DISORDER
     Dosage: 30 MILLIGRAM
     Route: 065
     Dates: start: 20100903, end: 20100912
  30. SOLU-MEDROL [Concomitant]
     Active Substance: METHYLPREDNISOLONE SODIUM SUCCINATE
     Dosage: 1000 MILLIGRAM
     Route: 041
     Dates: start: 20100916, end: 20100916
  31. DORMICUM [Concomitant]
     Dosage: 30 MILLILITER
     Route: 041
     Dates: start: 20100915, end: 20100915
  32. DOPMIN-K [Concomitant]
     Active Substance: DOBUTAMINE HYDROCHLORIDE
     Indication: PRODUCT USED FOR UNKNOWN INDICATION
     Dosage: 200 MILLILITER
     Route: 041
     Dates: start: 20100916, end: 20100916
  33. GLUCOSE [Concomitant]
     Active Substance: DEXTROSE
     Dosage: 40 MILLILITER
     Route: 065
     Dates: start: 20100916, end: 20100916
  34. LASIX [Concomitant]
     Active Substance: FUROSEMIDE
     Dosage: 24 MILLIGRAM
     Route: 065
     Dates: start: 20100917, end: 20100917
  35. GLUCOSE [Concomitant]
     Active Substance: DEXTROSE
     Indication: PRODUCT USED FOR UNKNOWN INDICATION
     Dosage: 100 MILLILITER
     Route: 065
     Dates: start: 20100916, end: 20100916
  36. NOVOLIN R [Concomitant]
     Active Substance: INSULIN HUMAN
     Indication: PRODUCT USED FOR UNKNOWN INDICATION
     Dosage: 100IU/ML, 8IU
     Route: 065
     Dates: start: 20100916, end: 20100916

REACTIONS (6)
  - Multiple organ dysfunction syndrome [Fatal]
  - Cardiac failure [Fatal]
  - Chronic hepatitis C [Not Recovered/Not Resolved]
  - Pneumonia [Fatal]
  - Platelet count decreased [Recovering/Resolving]
  - Neutropenia [Recovering/Resolving]

NARRATIVE: CASE EVENT DATE: 20100907
